FAERS Safety Report 22262014 (Version 1)
Quarter: 2023Q2

REPORT INFORMATION
  Report Type: Spontaneous
  Country: US (occurrence: US)
  Receive Date: 20230428
  Receipt Date: 20230428
  Transmission Date: 20230722
  Serious: No
  Sender: FDA-Public Use
  Company Number: US-CADILA HEALTHCARE LIMITED-US-ZYDUS-084559

PATIENT

DRUGS (1)
  1. CLOBETASOL PROPIONATE [Suspect]
     Active Substance: CLOBETASOL PROPIONATE
     Indication: Rash
     Dosage: 0.05 %
     Route: 061
     Dates: start: 202211, end: 202211

REACTIONS (2)
  - Periorbital oedema [Not Recovered/Not Resolved]
  - Face oedema [Not Recovered/Not Resolved]

NARRATIVE: CASE EVENT DATE: 20221101
